FAERS Safety Report 25346097 (Version 2)
Quarter: 2025Q3

REPORT INFORMATION
  Report Type: Report from Study
  Country: US (occurrence: US)
  Receive Date: 20250522
  Receipt Date: 20250710
  Transmission Date: 20251021
  Serious: Yes (Other)
  Sender: SUNOVION
  Company Number: US-SUMITOMO PHARMA SWITZERLAND GMBH-2025SPA006228

PATIENT

DRUGS (2)
  1. ORGOVYX [Suspect]
     Active Substance: RELUGOLIX
     Indication: Prostate cancer
     Dosage: 360 MG, SINGLE
     Route: 048
  2. ORGOVYX [Suspect]
     Active Substance: RELUGOLIX
     Dosage: 120 MG, QD
     Route: 048
     Dates: start: 20250513

REACTIONS (11)
  - Limb operation [Unknown]
  - Elbow operation [Unknown]
  - Ulnar neuritis [Unknown]
  - Anal incontinence [Unknown]
  - Micturition disorder [Unknown]
  - Inflammation [Unknown]
  - Abdominal distension [Unknown]
  - Fatigue [Unknown]
  - Diarrhoea [Unknown]
  - Hot flush [Unknown]
  - Weight increased [Unknown]
